FAERS Safety Report 9747619 (Version 1)
Quarter: 2013Q4

REPORT INFORMATION
  Report Type: Spontaneous
  Country: US (occurrence: None)
  Receive Date: 20131211
  Receipt Date: 20131211
  Transmission Date: 20140711
  Serious: Yes (Life-Threatening, Hospitalization, Other)
  Sender: FDA-Public Use
  Company Number: None

PATIENT
  Age: 75 Year
  Sex: Female
  Weight: 131.09 kg

DRUGS (3)
  1. LISINOPRIL [Suspect]
     Indication: HYPERTENSION
     Dosage: 20-25 MG?1/TAB/BID?TWICE DAILY?2 PER DAT
     Dates: end: 20131105
  2. ASPIRIN [Concomitant]
  3. IRON PILLS [Concomitant]

REACTIONS (5)
  - Swelling [None]
  - Dysarthria [None]
  - Hypoaesthesia oral [None]
  - Oropharyngeal pain [None]
  - Swollen tongue [None]
